FAERS Safety Report 11030950 (Version 1)
Quarter: 2015Q2

REPORT INFORMATION
  Report Type: Spontaneous
  Country: None (occurrence: None)
  Receive Date: 20150414
  Receipt Date: 20150414
  Transmission Date: 20150821
  Serious: Yes (Disabling)
  Sender: FDA-Public Use
  Company Number: None

PATIENT
  Age: 34 Year
  Sex: Female
  Weight: 71.67 kg

DRUGS (4)
  1. CEPHALEXIN 500MG [Suspect]
     Active Substance: CEPHALEXIN
     Indication: INFECTION PROPHYLAXIS
     Dosage: 4 PILLS
     Route: 048
     Dates: start: 20150324, end: 20150401
  2. ZOLOFT [Concomitant]
     Active Substance: SERTRALINE HYDROCHLORIDE
  3. CEPHALEXIN 500MG [Suspect]
     Active Substance: CEPHALEXIN
     Indication: POSTOPERATIVE CARE
     Dosage: 4 PILLS
     Route: 048
     Dates: start: 20150324, end: 20150401
  4. LIALDA [Concomitant]
     Active Substance: MESALAMINE

REACTIONS (1)
  - Clostridium difficile infection [None]

NARRATIVE: CASE EVENT DATE: 20150330
